FAERS Safety Report 8581586-2 (Version None)
Quarter: 2012Q2

REPORT INFORMATION
  Report Type: 
  Country: None (occurrence: None)
  Receive Date: 20120423
  Receipt Date: 20101027
  Transmission Date: 20120825
  Serious: Yes (Other)
  Sender: FDA-Public Use
  Company Number: PHHY2010US45019

PATIENT
  Age: 55 Year
  Sex: Male
  Weight: 88.4 kg

DRUGS (6)
  1. BLOOD TRANSFUSION, AUXILIARY PRODUCTS (NO INGREDIENTS/SUBSTANCES) [Concomitant]
  2. EXJADE [Suspect]
     Indication: HEREDITARY HAEMOCHROMATOSIS
     Dosage: 125MG DAILY, ORAL
     Route: 048
     Dates: start: 20100621
  3. WARFARIN SODIUM [Concomitant]
  4. DESFERAL [Concomitant]
  5. HYDROCHLOROTHIAZIDE [Concomitant]
  6. VITAMIN B COMPLEX CAP [Concomitant]

REACTIONS (4)
  - JOINT SWELLING [None]
  - TINNITUS [None]
  - DIARRHOEA [None]
  - DEAFNESS [None]
